FAERS Safety Report 6381669-1 (Version None)
Quarter: 2009Q3

REPORT INFORMATION
  Report Type: 
  Country: None (occurrence: None)
  Receive Date: 20090930
  Receipt Date: 20090915
  Transmission Date: 20100115
  Serious: Yes (Other)
  Sender: FDA-Public Use
  Company Number: PHEH2009US11698

PATIENT
  Sex: Female

DRUGS (3)
  1. TASIGNA [Suspect]
  2. VITAMINS [Concomitant]
  3. FISH OIL [Concomitant]

REACTIONS (3)
  - ABNORMAL DREAMS [None]
  - CATARACT [None]
  - RASH GENERALISED [None]
